FAERS Safety Report 8232622-4 (Version None)
Quarter: 2012Q1

REPORT INFORMATION
  Report Type: 
  Country: None (occurrence: None)
  Receive Date: 20120323
  Receipt Date: 20120315
  Transmission Date: 20120608
  Serious: Yes (Other)
  Sender: FDA-Public Use
  Company Number: CHPA2012US004982

PATIENT
  Age: 70 Year
  Sex: Female

DRUGS (1)
  1. VOLTAREN [Suspect]
     Indication: ARTHRITIS
     Dosage: UNK, UNK
     Route: 061
     Dates: start: 20120223, end: 20120226

REACTIONS (6)
  - OEDEMA PERIPHERAL [None]
  - WEIGHT INCREASED [None]
  - BLOOD BLISTER [None]
  - WRONG TECHNIQUE IN DRUG USAGE PROCESS [None]
  - INFECTION [None]
  - MUSCULOSKELETAL DISCOMFORT [None]
